FAERS Safety Report 11225061 (Version 2)
Quarter: 2015Q3

REPORT INFORMATION
  Report Type: Spontaneous
  Country: US (occurrence: None)
  Receive Date: 20150625
  Receipt Date: 20150709
  Transmission Date: 20151125
  Serious: Yes (Hospitalization)
  Sender: FDA-Public Use
  Company Number: 15-045

PATIENT
  Age: 34 Year
  Sex: Male

DRUGS (1)
  1. OSCILLOCOCCINUM [Suspect]
     Active Substance: CAIRINA MOSCHATA HEART/LIVER AUTOLYSATE
     Indication: INFLUENZA LIKE ILLNESS
     Dosage: ORAL DOSES QTY UNKNOWN
     Route: 048

REACTIONS (4)
  - Angioedema [None]
  - Dysarthria [None]
  - Drooling [None]
  - Swollen tongue [None]

NARRATIVE: CASE EVENT DATE: 20150622
